FAERS Safety Report 10982837 (Version 2)
Quarter: 2016Q2

REPORT INFORMATION
  Report Type: Spontaneous
  Country: US (occurrence: US)
  Receive Date: 20150403
  Receipt Date: 20160609
  Transmission Date: 20160815
  Serious: No
  Sender: FDA-Public Use
  Company Number: US-JNJFOC-20150318848

PATIENT
  Age: 16 Year
  Sex: Male

DRUGS (2)
  1. RISPERDAL [Suspect]
     Active Substance: RISPERIDONE
     Indication: ATTENTION DEFICIT/HYPERACTIVITY DISORDER
     Dosage: 1 MG -3MG
     Route: 048
     Dates: start: 20030917, end: 2006
  2. RISPERDAL [Suspect]
     Active Substance: RISPERIDONE
     Indication: DEPRESSION
     Dosage: 1 MG -3MG
     Route: 048
     Dates: start: 20030917, end: 2006

REACTIONS (6)
  - Abnormal weight gain [Unknown]
  - Off label use [Unknown]
  - Product use issue [Unknown]
  - Insomnia [Unknown]
  - Gynaecomastia [Unknown]
  - Increased appetite [Unknown]

NARRATIVE: CASE EVENT DATE: 2003
